FAERS Safety Report 19263699 (Version 3)
Quarter: 2022Q1

REPORT INFORMATION
  Report Type: Other
  Country: GB (occurrence: GB)
  Receive Date: 20210517
  Receipt Date: 20220202
  Transmission Date: 20220423
  Serious: Yes (Other)
  Sender: FDA-Public Use
  Company Number: GB-MACLEODS PHARMA UK LTD-MAC2021031116

PATIENT

DRUGS (7)
  1. SILDENAFIL [Suspect]
     Active Substance: SILDENAFIL
     Indication: Product used for unknown indication
     Dosage: 100 MILLIGRAM
     Route: 048
  2. TADALAFIL [Suspect]
     Active Substance: TADALAFIL
     Indication: Erectile dysfunction
     Dosage: 5 MILLIGRAM, QD, FILM-COATED TABLET
     Route: 048
     Dates: start: 20210224, end: 20210325
  3. TADALAFIL [Suspect]
     Active Substance: TADALAFIL
     Indication: Benign prostatic hyperplasia
     Dosage: 7.5 MILLIGRAM FILM COATED TABLET, (MILPHARM) 5 MG PLUS HALF OF 5 MG TABLET
     Route: 048
     Dates: start: 20210325, end: 20210401
  4. TADALAFIL [Suspect]
     Active Substance: TADALAFIL
     Dosage: 7.5 MILLIGRAM MILPHARM, FILM-COATED TABLET AND 5MG ON ALTERNATE DAYS
     Route: 048
     Dates: start: 20210401
  5. TADALAFIL [Suspect]
     Active Substance: TADALAFIL
     Dosage: 2 DOSAGE FORM, TABLETS, TEVA, ON TWO CONSECUTIVE DAYS
     Route: 065
  6. FLUTICASONE PROPIONATE [Concomitant]
     Active Substance: FLUTICASONE PROPIONATE
     Indication: Nasal congestion
     Dosage: 50 MICROGRAM, BID, 1 DOSAGE FORM, BID, ONE PUFF EACH NOSTRIL MORNING AND EVENING
  7. TAMSULOSIN [Concomitant]
     Active Substance: TAMSULOSIN
     Indication: Benign prostatic hyperplasia
     Dosage: 1 DOSAGE FORM, QD
     Route: 048
     Dates: start: 201701

REACTIONS (8)
  - Erectile dysfunction [Recovered/Resolved]
  - Pollakiuria [Recovered/Resolved]
  - Nasal congestion [Recovering/Resolving]
  - Visual impairment [Recovered/Resolved]
  - Drug ineffective [Recovered/Resolved]
  - Product substitution issue [Unknown]
  - Off label use [Unknown]
  - Wrong technique in product usage process [Unknown]

NARRATIVE: CASE EVENT DATE: 20170101
